FAERS Safety Report 17431689 (Version 1)
Quarter: 2020Q1

REPORT INFORMATION
  Report Type: Spontaneous
  Country: CA (occurrence: CA)
  Receive Date: 20200218
  Receipt Date: 20200218
  Transmission Date: 20200409
  Serious: Yes (Other)
  Sender: FDA-Public Use
  Company Number: CA-PFIZER INC-2019420756

PATIENT
  Age: 58 Year
  Sex: Female

DRUGS (4)
  1. CORTISONE [Concomitant]
     Active Substance: CORTISONE
     Dosage: 7.5 MG, UNK
  2. XELJANZ [Suspect]
     Active Substance: TOFACITINIB CITRATE
     Indication: RHEUMATOID ARTHRITIS
     Dosage: 5 MG, 2X/DAY
     Route: 048
     Dates: start: 20190917
  3. CORTISONE [Concomitant]
     Active Substance: CORTISONE
     Dosage: UNK
  4. CORTISONE [Concomitant]
     Active Substance: CORTISONE
     Dosage: 20 MG, UNK

REACTIONS (7)
  - Condition aggravated [Unknown]
  - Arthralgia [Recovering/Resolving]
  - Drug ineffective [Unknown]
  - Musculoskeletal pain [Recovering/Resolving]
  - Pelvic pain [Recovering/Resolving]
  - Suicidal ideation [Unknown]
  - Purpura [Not Recovered/Not Resolved]
